FAERS Safety Report 17302744 (Version 2)
Quarter: 2020Q1

REPORT INFORMATION
  Report Type: Spontaneous
  Country: DK (occurrence: DK)
  Receive Date: 20200122
  Receipt Date: 20200128
  Transmission Date: 20200409
  Serious: Yes (Hospitalization, Disabling)
  Sender: FDA-Public Use
  Company Number: DK-BAYER-2020-005007

PATIENT
  Age: 22 Year
  Sex: Female

DRUGS (1)
  1. KYLEENA [Suspect]
     Active Substance: LEVONORGESTREL
     Indication: CONTRACEPTION
     Dosage: 17.5 MCG/24HR, CONT
     Route: 015
     Dates: start: 201903

REACTIONS (3)
  - Ectopic pregnancy with contraceptive device [Recovered/Resolved]
  - Oophorectomy [Recovered/Resolved]
  - Salpingectomy [Recovered/Resolved]

NARRATIVE: CASE EVENT DATE: 2019
